FAERS Safety Report 7573556-8 (Version None)
Quarter: 2011Q2

REPORT INFORMATION
  Report Type: 
  Country: None (occurrence: None)
  Receive Date: 20110525
  Receipt Date: 20110311
  Transmission Date: 20111010
  Serious: No
  Sender: FDA-Public Use
  Company Number: 324859

PATIENT
  Sex: Male

DRUGS (2)
  1. HUMULIN 70/30 (INSULIN HUMAN, INSULIN HUMAN INJECTION, ISOPHANE) [Suspect]
     Indication: DIABETES MELLITUS
     Dosage: 40 IU
  2. VICTOZA [Suspect]
     Indication: PRODUCT USED FOR UNKNOWN INDICATION
     Dosage: 0.6 MG, QD
     Dates: start: 20110311

REACTIONS (1)
  - BLOOD GLUCOSE DECREASED [None]
